FAERS Safety Report 8780150 (Version 1)
Quarter: 2012Q4

REPORT INFORMATION
  Report Type: Spontaneous
  Country: US (occurrence: None)
  Receive Date: 20120829
  Receipt Date: 20120829
  Transmission Date: 20130627
  Serious: Yes (Other)
  Sender: FDA-Public Use
  Company Number: E2B_00000359

PATIENT
  Age: 30 Year
  Sex: Male
  Weight: 66 kg

DRUGS (2)
  1. LEVETIRACETAM [Suspect]
     Indication: SEIZURE
     Route: 048
     Dates: start: 201201
  2. LEVETIRACETAM [Suspect]
     Indication: SEIZURE
     Dosage: ranging from 250 mg to 850 mg per day
     Route: 048

REACTIONS (8)
  - Amnesia [None]
  - Weight decreased [None]
  - Personality change [None]
  - Treatment noncompliance [None]
  - Partial seizures [None]
  - Convulsion [None]
  - Drug ineffective [None]
  - Loss of consciousness [None]
